FAERS Safety Report 13037012 (Version 2)
Quarter: 2017Q1

REPORT INFORMATION
  Report Type: Spontaneous
  Country: US (occurrence: US)
  Receive Date: 20161216
  Receipt Date: 20170125
  Transmission Date: 20170428
  Serious: Yes (Life-Threatening, Hospitalization, Other)
  Sender: FDA-Public Use
  Company Number: US-CONCORDIA LABORATORIES INC.-PIN-630-2016-00005

PATIENT
  Sex: Male

DRUGS (2)
  1. DIOMED 630 PDT LASER [Suspect]
     Active Substance: DEVICE
     Indication: PHOTODYNAMIC THERAPY
  2. PHOTOFRIN [Suspect]
     Active Substance: PORFIMER SODIUM
     Indication: OESOPHAGEAL CARCINOMA

REACTIONS (3)
  - Condition aggravated [Recovered/Resolved]
  - Delayed recovery from anaesthesia [Recovered/Resolved]
  - Device malfunction [Unknown]
